FAERS Safety Report 7097479-6 (Version None)
Quarter: 2010Q4

REPORT INFORMATION
  Report Type: 
  Country: None (occurrence: None)
  Receive Date: 20101111
  Receipt Date: 20100701
  Transmission Date: 20110411
  Serious: Yes (Death)
  Sender: FDA-Public Use
  Company Number: PHHY2010US40567

PATIENT
  Sex: Female

DRUGS (2)
  1. EXJADE [Suspect]
     Indication: HAEMATOPOIETIC NEOPLASM
     Dosage: 1125 MG, QD
     Route: 048
     Dates: start: 20100601
  2. EXJADE [Suspect]
     Dosage: UNK
     Dates: start: 20100603

REACTIONS (3)
  - BIOPSY LIVER [None]
  - FATIGUE [None]
  - HEPATIC HAEMORRHAGE [None]
